FAERS Safety Report 13361443 (Version 1)
Quarter: 2017Q1

REPORT INFORMATION
  Report Type: Spontaneous
  Country: US (occurrence: US)
  Receive Date: 20170323
  Receipt Date: 20170323
  Transmission Date: 20170429
  Serious: No
  Sender: FDA-Public Use
  Company Number: US-009507513-1703USA007684

PATIENT
  Sex: Male

DRUGS (1)
  1. KEYTRUDA [Suspect]
     Active Substance: PEMBROLIZUMAB
     Indication: SQUAMOUS CELL CARCINOMA OF SKIN
     Dosage: 2 MG/KG, CYCLICAL

REACTIONS (4)
  - Xerosis [Unknown]
  - Decreased appetite [Unknown]
  - Therapy partial responder [Unknown]
  - Fatigue [Unknown]
